FAERS Safety Report 20596489 (Version 3)
Quarter: 2022Q2

REPORT INFORMATION
  Report Type: Spontaneous
  Country: US (occurrence: US)
  Receive Date: 20220315
  Receipt Date: 20220418
  Transmission Date: 20220721
  Serious: Yes (Other)
  Sender: FDA-Public Use
  Company Number: US-PFIZER INC-202200360655

PATIENT
  Age: 72 Year
  Sex: Female

DRUGS (1)
  1. IBRANCE [Suspect]
     Active Substance: PALBOCICLIB
     Dosage: UNK

REACTIONS (6)
  - Eye operation [Unknown]
  - Neoplasm progression [Unknown]
  - Dyspnoea [Unknown]
  - Lung disorder [Unknown]
  - Feeling abnormal [Unknown]
  - Lack of spontaneous speech [Unknown]
